FAERS Safety Report 23962756 (Version 1)
Quarter: 2024Q2

REPORT INFORMATION
  Report Type: Spontaneous
  Country: US (occurrence: US)
  Receive Date: 20240611
  Receipt Date: 20240611
  Transmission Date: 20240716
  Serious: No
  Sender: FDA-Public Use
  Company Number: US-GALDERMA-US2024008443

PATIENT

DRUGS (1)
  1. DIFFERIN GEL [Suspect]
     Active Substance: ADAPALENE
     Indication: Product used for unknown indication
     Dosage: 1 DOSAGE FORM, BIW
     Route: 061

REACTIONS (5)
  - Rash papular [Unknown]
  - Application site erythema [Unknown]
  - Application site pruritus [Unknown]
  - Intentional product misuse [Recovered/Resolved]
  - Intentional underdose [Recovered/Resolved]
